FAERS Safety Report 10476508 (Version 1)
Quarter: 2014Q3

REPORT INFORMATION
  Report Type: Spontaneous
  Country: TR (occurrence: TR)
  Receive Date: 20140925
  Receipt Date: 20140925
  Transmission Date: 20150326
  Serious: Yes (Congenital Anomaly)
  Sender: FDA-Public Use
  Company Number: TR-GLAXOSMITHKLINE-B1036511A

PATIENT

DRUGS (1)
  1. LAMICTAL [Suspect]
     Active Substance: LAMOTRIGINE
     Indication: EPILEPSY
     Dosage: 350MG PER DAY
     Route: 064

REACTIONS (6)
  - Congenital eye disorder [Unknown]
  - Hyporeflexia [Unknown]
  - Abortion induced [Unknown]
  - Tachycardia [Unknown]
  - Congenital anomaly [Unknown]
  - Foetal exposure during pregnancy [Unknown]
